FAERS Safety Report 5233609-6 (Version None)
Quarter: 2007Q1

REPORT INFORMATION
  Report Type: 
  Country: None (occurrence: None)
  Receive Date: 20070208
  Receipt Date: 20070205
  Transmission Date: 20070707
  Serious: Yes (Other)
  Sender: FDA-Public Use
  Company Number: AU-BRISTOL-MYERS SQUIBB COMPANY-13454640

PATIENT
  Sex: Male

DRUGS (1)
  1. AVAPRO HCT [Suspect]

REACTIONS (2)
  - GOUT [None]
  - RENAL CELL CARCINOMA STAGE UNSPECIFIED [None]
